FAERS Safety Report 8291118-4 (Version None)
Quarter: 2012Q2

REPORT INFORMATION
  Report Type: 
  Country: None (occurrence: None)
  Receive Date: 20120417
  Receipt Date: 20110816
  Transmission Date: 20120825
  Serious: No
  Sender: FDA-Public Use
  Company Number: US-ASTRAZENECA-2011SE49284

PATIENT
  Age: 39 Year
  Sex: Female

DRUGS (19)
  1. FISH OIL [Concomitant]
  2. TRAMADOL HCL [Concomitant]
  3. BENAZEPRIL HYDROCHLORIDE [Concomitant]
  4. CALCIUNM WITH D [Concomitant]
  5. GARLIC [Concomitant]
  6. NOVOLOG [Concomitant]
  7. ASPIRIN [Concomitant]
  8. NOVOLIN 70/30 [Concomitant]
  9. PRAVASTATIN SODIUM [Concomitant]
  10. MULTI-VITAMIN [Concomitant]
  11. CVS CINNAMON [Concomitant]
  12. CYCLOBENZAPRINE HCL [Concomitant]
  13. PROMETHAZINE -DM SYRP [Concomitant]
     Indication: COUGH
  14. NEXIUM [Suspect]
     Route: 048
  15. VITAMIN B COMPLEX CAP [Concomitant]
  16. TRIAMCINOLONE ACETONIDE [Concomitant]
  17. LEVOTHROID [Concomitant]
  18. HYDROCHLOROTHIAZIDE [Concomitant]
  19. SLEEP AID OTC [Concomitant]

REACTIONS (3)
  - RESTLESS LEGS SYNDROME [None]
  - COUGH [None]
  - PAIN [None]
